FAERS Safety Report 9240883 (Version 1)
Quarter: 2013Q2

REPORT INFORMATION
  Report Type: Spontaneous
  Country: US (occurrence: US)
  Receive Date: 20130419
  Receipt Date: 20130419
  Transmission Date: 20140414
  Serious: No
  Sender: FDA-Public Use
  Company Number: US-SANOFI-AVENTIS-2013SA020002

PATIENT
  Sex: Female

DRUGS (6)
  1. LOVENOX [Suspect]
  2. LOVENOX [Suspect]
     Indication: MASS
  3. LOVENOX [Suspect]
     Indication: ANTICOAGULANT THERAPY
  4. LOVENOX [Suspect]
  5. LOVENOX [Suspect]
     Indication: MASS
  6. LOVENOX [Suspect]
     Indication: ANTICOAGULANT THERAPY

REACTIONS (5)
  - Malaise [Not Recovered/Not Resolved]
  - Nausea [Not Recovered/Not Resolved]
  - Hypersomnia [Not Recovered/Not Resolved]
  - Epistaxis [Not Recovered/Not Resolved]
  - Exposure during pregnancy [Unknown]
